FAERS Safety Report 25865967 (Version 2)
Quarter: 2025Q4

REPORT INFORMATION
  Report Type: Spontaneous
  Country: US (occurrence: US)
  Receive Date: 20250930
  Receipt Date: 20251010
  Transmission Date: 20260117
  Serious: No
  Sender: INCYTE
  Company Number: US-EVENT-004355

PATIENT

DRUGS (1)
  1. JAKAFI [Suspect]
     Active Substance: RUXOLITINIB
     Indication: Haemophagocytic lymphohistiocytosis
     Dosage: 15 MILLIGRAM, BID
     Route: 065

REACTIONS (1)
  - Off label use [Unknown]
